FAERS Safety Report 7500710-3 (Version None)
Quarter: 2011Q2

REPORT INFORMATION
  Report Type: 
  Country: None (occurrence: None)
  Receive Date: 20110524
  Receipt Date: 20110517
  Transmission Date: 20111010
  Serious: Yes (Death, Hospitalization)
  Sender: FDA-Public Use
  Company Number: US-MERCK-1105USA01625

PATIENT
  Age: 56 Year

DRUGS (1)
  1. STROMECTOL [Suspect]
     Route: 048

REACTIONS (1)
  - STRONGYLOIDIASIS [None]
